FAERS Safety Report 5875535-5 (Version None)
Quarter: 2008Q3

REPORT INFORMATION
  Report Type: 
  Country: None (occurrence: None)
  Receive Date: 20080909
  Receipt Date: 20080828
  Transmission Date: 20090109
  Serious: No
  Sender: FDA-Public Use
  Company Number: US-ELI_LILLY_AND_COMPANY-US200808006224

PATIENT
  Sex: Female

DRUGS (3)
  1. ZYPREXA [Suspect]
     Dosage: 2.5 MG, EACH EVENING
     Dates: start: 20080501, end: 20080801
  2. CYMBALTA [Suspect]
  3. TEGRETOL [Concomitant]

REACTIONS (1)
  - HEPATIC ENZYME INCREASED [None]
